FAERS Safety Report 5405199-6 (Version None)
Quarter: 2007Q3

REPORT INFORMATION
  Report Type: 
  Country: None (occurrence: None)
  Receive Date: 20070803
  Receipt Date: 20070719
  Transmission Date: 20080115
  Serious: Yes (Hospitalization)
  Sender: FDA-Public Use
  Company Number: AU-ELI_LILLY_AND_COMPANY-AU200707004824

PATIENT
  Age: 16 Year
  Sex: Male
  Weight: 41.3 kg

DRUGS (4)
  1. HUMATROPE [Suspect]
     Indication: GROWTH RETARDATION
     Dosage: 1.6 MG, 6/W
     Route: 058
     Dates: start: 20000418, end: 20050610
  2. KEFLEX [Concomitant]
     Indication: RESPIRATORY TRACT INFECTION
     Dosage: 250 MG, 2/D
     Route: 048
     Dates: start: 19910224
  3. EPILIM [Concomitant]
     Indication: EPILEPSY
     Dosage: 300 MG, DAILY (1/D)
     Route: 048
     Dates: start: 19941206
  4. LAMOTRIGINE [Concomitant]
     Dosage: 125 MG, DAILY (1/D)
     Route: 048
     Dates: start: 19941114

REACTIONS (1)
  - ARTHRODESIS [None]
